FAERS Safety Report 18479501 (Version 1)
Quarter: 2020Q4

REPORT INFORMATION
  Report Type: Spontaneous
  Country: US (occurrence: US)
  Receive Date: 20201109
  Receipt Date: 20201109
  Transmission Date: 20210114
  Serious: Yes (Other)
  Sender: FDA-Public Use
  Company Number: US-GLAXOSMITHKLINE-US2020GSK217698

PATIENT
  Age: 45 Year
  Sex: Male

DRUGS (6)
  1. APIXABAN [Concomitant]
     Active Substance: APIXABAN
     Indication: COAGULOPATHY
     Dosage: UNK
  2. NAFTIFINE. [Suspect]
     Active Substance: NAFTIFINE HYDROCHLORIDE
     Indication: DERMATOPHYTOSIS
     Dosage: UNK
     Route: 061
  3. CICLOPIROX CREAM [Concomitant]
     Active Substance: CICLOPIROX
     Indication: ONYCHOMYCOSIS
  4. TERBINAFINE. [Suspect]
     Active Substance: TERBINAFINE
     Indication: DERMATOPHYTOSIS
     Dosage: UNK
     Route: 048
  5. TERBINAFINE. [Suspect]
     Active Substance: TERBINAFINE
     Dosage: 250 MG
  6. CICLOPIROX CREAM [Concomitant]
     Active Substance: CICLOPIROX
     Indication: BODY TINEA
     Dosage: UNK
     Route: 061

REACTIONS (2)
  - Drug resistance [Unknown]
  - Pathogen resistance [Unknown]
